FAERS Safety Report 23583966 (Version 1)
Quarter: 2024Q1

REPORT INFORMATION
  Report Type: Spontaneous
  Country: EG (occurrence: EG)
  Receive Date: 20240301
  Receipt Date: 20240301
  Transmission Date: 20240409
  Serious: Yes (Other)
  Sender: FDA-Public Use
  Company Number: EG-JNJFOC-20240271739

PATIENT
  Sex: Male
  Weight: 50 kg

DRUGS (4)
  1. REMICADE [Suspect]
     Active Substance: INFLIXIMAB
     Indication: Crohn^s disease
     Dosage: 5 VIALS
     Route: 041
     Dates: start: 2018, end: 2023
  2. PENTASA [Concomitant]
     Active Substance: MESALAMINE
  3. FOLIC ACID [Concomitant]
     Active Substance: FOLIC ACID
  4. REBAMIPIDE [Concomitant]
     Active Substance: REBAMIPIDE

REACTIONS (6)
  - Crohn^s disease [Not Recovered/Not Resolved]
  - Anal haemorrhage [Not Recovered/Not Resolved]
  - Arthralgia [Unknown]
  - Insomnia [Unknown]
  - Drug level decreased [Unknown]
  - Drug ineffective [Unknown]
